FAERS Safety Report 5496553-5 (Version None)
Quarter: 2007Q4

REPORT INFORMATION
  Report Type: 
  Country: None (occurrence: None)
  Receive Date: 20071025
  Receipt Date: 20070615
  Transmission Date: 20080405
  Serious: No
  Sender: FDA-Public Use
  Company Number: A0656926A

PATIENT
  Age: 66 Year
  Sex: Female

DRUGS (11)
  1. ADVAIR DISKUS 100/50 [Suspect]
     Dosage: 2PUFF TWICE PER DAY
     Route: 055
     Dates: start: 20060101
  2. ALBUTEROL [Concomitant]
  3. VITAMIN E [Concomitant]
  4. CELEBREX [Concomitant]
  5. OXYBUTYNIN CHLORIDE [Concomitant]
  6. MULTI-VITAMIN [Concomitant]
  7. ACTONEL [Concomitant]
  8. VITAMIN B12 INJECTION [Concomitant]
  9. CHEMOTHERAPY [Concomitant]
  10. TRAMADOL HCL [Concomitant]
  11. TYLENOL (CAPLET) [Concomitant]

REACTIONS (4)
  - FEELING ABNORMAL [None]
  - HYPOAESTHESIA [None]
  - PRODUCTIVE COUGH [None]
  - THROAT IRRITATION [None]
